FAERS Safety Report 4761532-X (Version None)
Quarter: 2005Q3

REPORT INFORMATION
  Report Type: 
  Country: None (occurrence: None)
  Receive Date: 20050906
  Receipt Date: 20050824
  Transmission Date: 20060218
  Serious: Yes (Other)
  Sender: FDA-Public Use
  Company Number: 2005SE04836

PATIENT
  Age: 24659 Day
  Sex: Male

DRUGS (14)
  1. ROSUVASTATIN [Suspect]
     Indication: CARDIAC FAILURE CHRONIC
     Route: 048
     Dates: start: 20050301
  2. KALIPOZ [Concomitant]
     Indication: DIURETIC THERAPY
     Dosage: TOTAL DAILY DOSE: 391 MG ORAL
     Route: 048
  3. MAGNEZIN [Concomitant]
     Indication: DIURETIC THERAPY
     Dosage: TOTAL DAILY DOSE: 500 MG ORAL
     Route: 048
  4. CORDARONE [Concomitant]
     Indication: ATRIAL FIBRILLATION
     Dosage: TOTAL DAILY DOSE: 200 MG ORAL
     Route: 048
     Dates: start: 20050218
  5. ACARD [Concomitant]
     Indication: MYOCARDIAL ISCHAEMIA
     Dosage: TOTAL DAILY DOSE: 75 MG ORAL
     Route: 048
  6. PULMICORT [Concomitant]
     Indication: CHRONIC OBSTRUCTIVE PULMONARY DISEASE
     Dosage: TOTAL DAILY DOSE: 200 MCG RESPIRATORY (INHALATION)
     Route: 055
  7. DIAPREL [Concomitant]
     Indication: DIABETES MELLITUS
     Dosage: TOTAL DAILY DOSE: 80 MG ORAL
     Route: 048
  8. PRESTARIUM [Concomitant]
     Indication: CARDIAC FAILURE
     Dosage: TOTAL DAILY DOSE: 2 MG ORAL
     Route: 048
     Dates: start: 20050414
  9. HYDROCHLOROTIAZID [Concomitant]
     Indication: CARDIAC FAILURE
     Route: 048
     Dates: end: 20050414
  10. HYDROCHLOROTIAZID [Concomitant]
     Route: 048
     Dates: start: 20050414
  11. AMILORID [Concomitant]
     Indication: CARDIAC FAILURE
     Dosage: TOTAL DAILY DOSE: 5 MG ORAL
     Route: 048
     Dates: start: 20050414
  12. EUPHYLLIN LONG [Concomitant]
     Indication: CHRONIC OBSTRUCTIVE PULMONARY DISEASE
     Dosage: TOTAL DAILY DOSE: 500 MG ORAL
     Route: 048
     Dates: start: 20050414
  13. MUCOSOLVAN [Concomitant]
     Indication: CHRONIC OBSTRUCTIVE PULMONARY DISEASE
     Dosage: TOTAL DAILY DOSE: 120 MG ORAL
     Route: 048
     Dates: start: 20050414
  14. BERODUAL [Concomitant]
     Indication: CHRONIC OBSTRUCTIVE PULMONARY DISEASE
     Dosage: TOTAL DAILY DOSE: 60 GTT RESPIRATORY (INHALATION)
     Route: 055
     Dates: start: 20050414

REACTIONS (2)
  - PYREXIA [None]
  - WEIGHT DECREASED [None]
